FAERS Safety Report 9330920 (Version 1)
Quarter: 2013Q2

REPORT INFORMATION
  Report Type: Spontaneous
  Country: US (occurrence: US)
  Receive Date: 20130605
  Receipt Date: 20130605
  Transmission Date: 20140414
  Serious: Yes (Hospitalization)
  Sender: FDA-Public Use
  Company Number: US-PFIZER INC-2013166716

PATIENT
  Age: 54 Year
  Sex: Female

DRUGS (15)
  1. VFEND [Suspect]
     Indication: ANTIFUNGAL PROPHYLAXIS
     Dosage: 200 MG, 1X/DAY
     Dates: start: 20130501
  2. PREDNISONE [Concomitant]
     Dosage: UNK
  3. NYSTATIN [Concomitant]
     Dosage: UNK
  4. VALTREX [Concomitant]
     Dosage: UNK
  5. PEPCID [Concomitant]
     Dosage: UNK
  6. EFFEXOR-XR [Concomitant]
     Dosage: UNK
  7. SENOKOT [Concomitant]
     Dosage: UNK
  8. DAPSONE [Concomitant]
     Dosage: UNK
  9. FOSAMAX [Concomitant]
     Dosage: UNK
  10. CITRACAL + D [Concomitant]
     Dosage: UNK
  11. FERROUS SULPHATE [Concomitant]
     Dosage: UNK
  12. IRON [Concomitant]
     Dosage: UNK
  13. PRAVACHOL [Concomitant]
     Indication: BLOOD CHOLESTEROL ABNORMAL
     Dosage: UNK
  14. LISINOPRIL [Concomitant]
     Indication: HYPERTENSION
     Dosage: UNK
  15. BABY ASPIRIN [Concomitant]
     Dosage: UNK, 1X/DAY

REACTIONS (1)
  - Thrombosis [Recovered/Resolved]
